FAERS Safety Report 18285493 (Version 2)
Quarter: 2020Q4

REPORT INFORMATION
  Report Type: Other
  Country: US (occurrence: US)
  Receive Date: 20200919
  Receipt Date: 20201202
  Transmission Date: 20210113
  Serious: Yes (Hospitalization)
  Sender: FDA-Public Use
  Company Number: US-ROCHE-2642004

PATIENT
  Sex: Female

DRUGS (1)
  1. XELODA [Suspect]
     Active Substance: CAPECITABINE
     Indication: PANCREATIC CARCINOMA
     Dosage: TAKE 2 TABLET(S) BY MOUTH TWICE A DAY 12 HOURS APART WITH FOOD, FOR 7 DAYS?ON THEN 7 DAYS OFF,
     Route: 048

REACTIONS (4)
  - Femur fracture [Unknown]
  - Off label use [Unknown]
  - Lower limb fracture [Unknown]
  - Intentional product use issue [Unknown]
